FAERS Safety Report 9700153 (Version 1)
Quarter: 2013Q4

REPORT INFORMATION
  Report Type: Spontaneous
  Country: US (occurrence: None)
  Receive Date: 20131118
  Receipt Date: 20131118
  Transmission Date: 20140711
  Serious: Yes (Hospitalization)
  Sender: FDA-Public Use
  Company Number: 13-04675

PATIENT
  Age: 66 Year
  Sex: 0

DRUGS (3)
  1. ALBUTEROL SULFATE [Suspect]
     Indication: BRONCHIOLITIS
     Dosage: 1 VIAL TID-QID,2.5 MG/3ML.
     Dates: start: 2007, end: 201306
  2. SYMBICORT [Concomitant]
  3. TUDORZA PRESSAIR [Concomitant]

REACTIONS (1)
  - Pneumonia [None]
